FAERS Safety Report 11123220 (Version 1)
Quarter: 2015Q2

REPORT INFORMATION
  Report Type: Spontaneous
  Country: US (occurrence: US)
  Receive Date: 20150519
  Receipt Date: 20150519
  Transmission Date: 20150821
  Serious: No
  Sender: FDA-Public Use
  Company Number: US-ENDO PHARMACEUTICALS INC.-2015-000553

PATIENT
  Sex: Male

DRUGS (1)
  1. XIAFLEX [Suspect]
     Active Substance: COLLAGENASE CLOSTRIDIUM HISTOLYTICUM
     Indication: PEYRONIE^S DISEASE

REACTIONS (8)
  - Injection site swelling [Unknown]
  - Injection site haemorrhage [Unknown]
  - Mass [Unknown]
  - Pain [Unknown]
  - Blood blister [Unknown]
  - Inadequate aseptic technique in use of product [Unknown]
  - Drug ineffective [Unknown]
  - Contusion [Unknown]
